FAERS Safety Report 9958078 (Version 1)
Quarter: 2014Q1

REPORT INFORMATION
  Report Type: Report from Study
  Country: US (occurrence: US)
  Receive Date: 20140304
  Receipt Date: 20140304
  Transmission Date: 20141002
  Serious: No
  Sender: FDA-Public Use
  Company Number: US-ABBVIE-13P-163-1095010-00

PATIENT
  Age: 31 Year
  Sex: Female

DRUGS (9)
  1. HUMIRA [Suspect]
     Indication: CROHN^S DISEASE
     Dates: start: 20130412
  2. PREDNISONE [Concomitant]
     Indication: PRODUCT USED FOR UNKNOWN INDICATION
     Dosage: 5MG DAILY
     Dates: end: 20130520
  3. PREDNISONE [Concomitant]
     Dosage: 2.5MG DAILY
     Dates: start: 20130520, end: 20130522
  4. PREDNISONE [Concomitant]
     Dosage: 5MG DAILY
     Dates: start: 20130522
  5. LIALDA [Concomitant]
     Indication: PRODUCT USED FOR UNKNOWN INDICATION
     Dosage: 4.8MG DAILY
  6. AZATHIOPRINE [Concomitant]
     Indication: CROHN^S DISEASE
     Dosage: 150MG DAILY
  7. VALACYCLOVIR HCL PHARMA PAC [Concomitant]
     Indication: ANTIVIRAL PROPHYLAXIS
     Dosage: 500MG DAILY
  8. HYDROCODONE [Concomitant]
     Indication: PAIN
  9. CLORAZEPATE [Concomitant]
     Indication: ANXIETY

REACTIONS (3)
  - Migraine [Recovering/Resolving]
  - Nausea [Recovering/Resolving]
  - Vomiting [Recovering/Resolving]
